FAERS Safety Report 15709685 (Version 3)
Quarter: 2019Q3

REPORT INFORMATION
  Report Type: Report from Study
  Country: US (occurrence: US)
  Receive Date: 20181211
  Receipt Date: 20190926
  Transmission Date: 20191004
  Serious: Yes (Death, Hospitalization)
  Sender: FDA-Public Use
  Company Number: US-MYLANLABS-2018M1090752

PATIENT
  Age: 58 Year
  Sex: Female

DRUGS (1)
  1. GLATIRAMER ACETATE INJECTION [Suspect]
     Active Substance: GLATIRAMER ACETATE
     Indication: RELAPSING-REMITTING MULTIPLE SCLEROSIS
     Dosage: 40 MILLIGRAM, 3XW
     Route: 058
     Dates: start: 20181030, end: 20181204

REACTIONS (6)
  - Cardiac failure [Fatal]
  - Renal failure [Fatal]
  - Thrombosis [Fatal]
  - Hepatic failure [Fatal]
  - Pulmonary embolism [Fatal]
  - Gastrointestinal infection [Unknown]

NARRATIVE: CASE EVENT DATE: 20181127
